FAERS Safety Report 14999057 (Version 1)
Quarter: 2018Q2

REPORT INFORMATION
  Report Type: Spontaneous
  Country: US (occurrence: US)
  Receive Date: 20180612
  Receipt Date: 20180612
  Transmission Date: 20180711
  Serious: No
  Sender: FDA-Public Use
  Company Number: US-B.I. PHARMACEUTICALS,INC./RIDGEFIELD-2018-BI-029545

PATIENT
  Sex: Female

DRUGS (1)
  1. ATROVENT [Suspect]
     Active Substance: IPRATROPIUM BROMIDE
     Indication: BRONCHITIS CHRONIC
     Route: 055
     Dates: start: 2009, end: 201804

REACTIONS (2)
  - Dyspnoea [Unknown]
  - Choking [Unknown]

NARRATIVE: CASE EVENT DATE: 201804
